FAERS Safety Report 25187168 (Version 1)
Quarter: 2025Q2

REPORT INFORMATION
  Report Type: Spontaneous
  Country: US (occurrence: US)
  Receive Date: 20250411
  Receipt Date: 20250411
  Transmission Date: 20250717
  Serious: No
  Sender: SUNOVION
  Company Number: US-SUMITOMO PHARMA SWITZERLAND GMBH-2025SPA003339

PATIENT

DRUGS (1)
  1. GEMTESA [Suspect]
     Active Substance: VIBEGRON
     Route: 048

REACTIONS (5)
  - Insomnia [Unknown]
  - Dysuria [Unknown]
  - Skin abrasion [Unknown]
  - Pollakiuria [Unknown]
  - Therapy interrupted [Unknown]
